FAERS Safety Report 8813464 (Version 1)
Quarter: 2012Q4

REPORT INFORMATION
  Report Type: 
  Country: US (occurrence: US)
  Receive Date: 20120927
  Receipt Date: 20120927
  Transmission Date: 20130627
  Serious: No
  Sender: FDA-Public Use
  Company Number: US-AMGEN-USASP2012046055

PATIENT
  Age: 65 Year
  Sex: Female

DRUGS (5)
  1. PROLIA [Suspect]
     Indication: OSTEOPOROSIS POSTMENOPAUSAL
     Dosage: 60 mg, q6mo
     Dates: start: 201202
  2. SYNTHROID [Concomitant]
     Dosage: UNK
  3. TOPROL [Concomitant]
  4. CRESTOR [Concomitant]
     Dosage: UNK
  5. CALCIUM W/VITAMIN D NOS [Concomitant]
     Dosage: UNK

REACTIONS (3)
  - Tooth disorder [Not Recovered/Not Resolved]
  - Gingival recession [Not Recovered/Not Resolved]
  - Pain in extremity [Not Recovered/Not Resolved]
